FAERS Safety Report 19631208 (Version 1)
Quarter: 2021Q3

REPORT INFORMATION
  Report Type: Spontaneous
  Country: DE (occurrence: DE)
  Receive Date: 20210729
  Receipt Date: 20210729
  Transmission Date: 20211014
  Serious: Yes (Other)
  Sender: FDA-Public Use
  Company Number: DE-ASTRAZENECA-2021A637895

PATIENT
  Age: 53 Year
  Sex: Male

DRUGS (8)
  1. CANDESARTAN. [Concomitant]
     Active Substance: CANDESARTAN
  2. APIXABAN [Concomitant]
     Active Substance: APIXABAN
  3. BISOPROLOL [Concomitant]
     Active Substance: BISOPROLOL
  4. TORASEMIDE [Concomitant]
     Active Substance: TORSEMIDE
  5. EPLERENONE. [Concomitant]
     Active Substance: EPLERENONE
  6. VALSARTAN/SACUBITRIL [Concomitant]
     Active Substance: SACUBITRIL\VALSARTAN
     Dosage: 24/26MG TWO TIMES A DAY.
  7. DAPAGLIFLOZIN. [Suspect]
     Active Substance: DAPAGLIFLOZIN
     Indication: CARDIAC FAILURE CHRONIC
     Route: 048
  8. BISOPROLOL [Concomitant]
     Active Substance: BISOPROLOL

REACTIONS (2)
  - Tachycardia induced cardiomyopathy [Unknown]
  - Hypertensive heart disease [Unknown]
